FAERS Safety Report 10652278 (Version 1)
Quarter: 2014Q4

REPORT INFORMATION
  Report Type: Spontaneous
  Country: US (occurrence: None)
  Receive Date: 20141212
  Receipt Date: 20141212
  Transmission Date: 20150529
  Serious: Yes (Life-Threatening, Hospitalization, Other)
  Sender: FDA-Public Use
  Company Number: None

PATIENT
  Age: 51 Year
  Sex: Female
  Weight: 47.63 kg

DRUGS (8)
  1. VITAMIN D [Concomitant]
     Active Substance: CHOLECALCIFEROL
  2. REMERON [Concomitant]
     Active Substance: MIRTAZAPINE
  3. OMEPRAZOL [Concomitant]
     Active Substance: OMEPRAZOLE
  4. XANAX [Concomitant]
     Active Substance: ALPRAZOLAM
  5. LEVEXOTHYROID [Concomitant]
  6. CELEXA [Concomitant]
     Active Substance: CITALOPRAM HYDROBROMIDE
  7. SENSIPAR [Suspect]
     Active Substance: CINACALCET HYDROCHLORIDE
     Indication: PRODUCT USED FOR UNKNOWN INDICATION
     Route: 048
     Dates: start: 200603, end: 200906
  8. CALCIUM [Concomitant]
     Active Substance: CALCIUM

REACTIONS (3)
  - Thyroid cancer [None]
  - Ependymoma malignant [None]
  - Adrenal neoplasm [None]
